FAERS Safety Report 25309830 (Version 1)
Quarter: 2025Q2

REPORT INFORMATION
  Report Type: Spontaneous
  Country: US (occurrence: US)
  Receive Date: 20250514
  Receipt Date: 20250514
  Transmission Date: 20250716
  Serious: No
  Sender: ROCHE
  Company Number: US-ROCHE-10000279299

PATIENT
  Sex: Female

DRUGS (3)
  1. ACTEMRA ACTPEN [Suspect]
     Active Substance: TOCILIZUMAB
     Indication: Systemic scleroderma
     Dosage: STRENGTH : 162MG/0.9M
     Route: 058
     Dates: start: 202303
  2. ACTEMRA ACTPEN [Suspect]
     Active Substance: TOCILIZUMAB
     Indication: Interstitial lung disease
  3. TYVASO DPI MAINT KIT PWD [Concomitant]

REACTIONS (2)
  - Peripheral swelling [Unknown]
  - Joint swelling [Unknown]
